FAERS Safety Report 8857254 (Version 1)
Quarter: 2012Q4

REPORT INFORMATION
  Report Type: 
  Country: CA (occurrence: CA)
  Receive Date: 20121024
  Receipt Date: 20121024
  Transmission Date: 20130627
  Serious: Yes (Death)
  Sender: FDA-Public Use
  Company Number: PHHY2012CA028305

PATIENT
  Age: 52 Year
  Sex: Female

DRUGS (1)
  1. ZOMETA [Suspect]
     Indication: BREAST CANCER METASTATIC
     Dosage: 4 mg, every 4 weeks
     Route: 042
     Dates: start: 20100714, end: 20111228

REACTIONS (4)
  - Death [Fatal]
  - Somnolence [Unknown]
  - Malaise [Unknown]
  - Chills [Unknown]
